FAERS Safety Report 4972467-1 (Version None)
Quarter: 2006Q2

REPORT INFORMATION
  Report Type: 
  Country: None (occurrence: None)
  Receive Date: 20060413
  Receipt Date: 20060403
  Transmission Date: 20061013
  Serious: Yes (Other)
  Sender: FDA-Public Use
  Company Number: CA-MERCK-0604CAN00003

PATIENT
  Age: 54 Year
  Sex: Female
  Weight: 105 kg

DRUGS (5)
  1. FOSAMAX [Suspect]
     Indication: OSTEOPOROSIS POSTMENOPAUSAL
     Route: 048
     Dates: start: 20060130
  2. PROPRANOLOL HYDROCHLORIDE [Concomitant]
     Indication: MIGRAINE PROPHYLAXIS
     Route: 065
     Dates: start: 20050201
  3. CITALOPRAM [Concomitant]
     Indication: DYSTHYMIC DISORDER
     Route: 065
     Dates: start: 20040226
  4. LANSOPRAZOLE [Concomitant]
     Indication: GASTROOESOPHAGEAL REFLUX DISEASE
     Route: 065
     Dates: start: 20011010
  5. ASPIRIN AND BUTALBITAL AND CAFFEINE [Concomitant]
     Indication: HEADACHE
     Route: 065
     Dates: start: 20020412

REACTIONS (3)
  - MUSCLE SPASMS [None]
  - ROAD TRAFFIC ACCIDENT [None]
  - WHIPLASH INJURY [None]
